FAERS Safety Report 8539800-5 (Version None)
Quarter: 2012Q3

REPORT INFORMATION
  Report Type: 
  Country: None (occurrence: None)
  Receive Date: 20120726
  Receipt Date: 20120606
  Transmission Date: 20120928
  Serious: No
  Sender: FDA-Public Use
  Company Number: US-MYLANLABS-2012S1011151

PATIENT
  Age: 16 Year
  Sex: Female

DRUGS (2)
  1. BUPROPION HYDROCHLORIDE [Suspect]
     Indication: DEPRESSION
     Route: 048
     Dates: start: 20120401
  2. BUPROPION HYDROCHLORIDE [Suspect]
     Indication: SOCIAL PHOBIA
     Route: 048
     Dates: start: 20120401

REACTIONS (5)
  - ANXIETY [None]
  - MENTAL IMPAIRMENT [None]
  - FEELING ABNORMAL [None]
  - NAUSEA [None]
  - DRUG EFFECT DECREASED [None]
